FAERS Safety Report 24168489 (Version 2)
Quarter: 2024Q3

REPORT INFORMATION
  Report Type: Spontaneous
  Country: RU (occurrence: None)
  Receive Date: 20240802
  Receipt Date: 20240820
  Transmission Date: 20241016
  Serious: Yes (Life-Threatening, Hospitalization, Other)
  Sender: ASTRAZENECA
  Company Number: 2024A174425

PATIENT
  Sex: Female

DRUGS (8)
  1. ROSUVASTATIN [Suspect]
     Active Substance: ROSUVASTATIN\ROSUVASTATIN CALCIUM
     Dosage: IN THE EVENING
     Route: 048
  2. BISOPROLOL [Concomitant]
     Active Substance: BISOPROLOL\BISOPROLOL FUMARATE
     Dosage: 2.5 MG ONCE IN THE MORNING
  3. EPLERENONE [Concomitant]
     Active Substance: EPLERENONE
     Dosage: 25 MG ONCE IN THE MORNING
  4. AZILSARTAN KAMEDOXOMIL [Concomitant]
     Active Substance: AZILSARTAN KAMEDOXOMIL
     Dosage: 40 MG
  5. CHLORTHALIDONE [Concomitant]
     Active Substance: CHLORTHALIDONE
     Dosage: 12.5 MG AS A FIXED COMBINATION ONCE IN THE MORNING
  6. CLOPIDOGREL [Concomitant]
     Active Substance: CLOPIDOGREL BISULFATE
     Dosage: 75 MG ONCE IN THE MORNING
  7. LERCANIDIPINE HYDROCHLORIDE [Concomitant]
     Active Substance: LERCANIDIPINE HYDROCHLORIDE
     Dosage: 10 MG ONCE IN THE EVENING
  8. METFORMIN [Concomitant]
     Active Substance: METFORMIN HYDROCHLORIDE
     Dosage: IN THE MORNING

REACTIONS (19)
  - Sinus bradycardia [Unknown]
  - Syncope [Unknown]
  - Cardiac failure chronic [Unknown]
  - Mitral valve incompetence [Unknown]
  - Pulmonary hypertension [Unknown]
  - Atrioventricular block first degree [Unknown]
  - Diabetic nephropathy [Unknown]
  - Chronic kidney disease [Unknown]
  - Cholecystitis chronic [Unknown]
  - Aortic stenosis [Unknown]
  - Pyelonephritis chronic [Unknown]
  - Cerebral ischaemia [Unknown]
  - Cerebrovascular disorder [Unknown]
  - Hyperuricaemia [Unknown]
  - Diabetic retinopathy [Unknown]
  - Dyslipidaemia [Unknown]
  - Hyperkalaemia [Unknown]
  - Goitre [Unknown]
  - Iron deficiency anaemia [Unknown]
